FAERS Safety Report 5422310-1 (Version None)
Quarter: 2007Q3

REPORT INFORMATION
  Report Type: 
  Country: None (occurrence: None)
  Receive Date: 20070817
  Receipt Date: 20070809
  Transmission Date: 20080115
  Serious: Yes (Other)
  Sender: FDA-Public Use
  Company Number: 17226

PATIENT
  Age: 73 Year
  Sex: Female

DRUGS (1)
  1. ANZATAX [Suspect]
     Indication: OVARIAN CANCER
     Dosage: 310 MG IV
     Route: 042
     Dates: start: 20070803, end: 20070803

REACTIONS (2)
  - HYPOTENSION [None]
  - LARYNGOSPASM [None]
